FAERS Safety Report 7139593-2 (Version None)
Quarter: 2010Q4

REPORT INFORMATION
  Report Type: 
  Country: None (occurrence: None)
  Receive Date: 20101206
  Receipt Date: 20101127
  Transmission Date: 20110411
  Serious: Yes (Hospitalization)
  Sender: FDA-Public Use
  Company Number: DE-ABBOTT-10P-062-0688221-00

PATIENT
  Sex: Female
  Weight: 70 kg

DRUGS (1)
  1. KLACID TABLETS [Suspect]
     Indication: SUICIDE ATTEMPT
     Dosage: 10 X 250 MG ONCE
     Route: 048
     Dates: start: 20101126, end: 20101126

REACTIONS (1)
  - SUICIDE ATTEMPT [None]
